FAERS Safety Report 7666508-0 (Version None)
Quarter: 2011Q3

REPORT INFORMATION
  Report Type: 
  Country: None (occurrence: None)
  Receive Date: 20110806
  Receipt Date: 20110420
  Transmission Date: 20111222
  Serious: No
  Sender: FDA-Public Use
  Company Number: US-ABBOTT-11P-163-0720669-00

PATIENT
  Sex: Female
  Weight: 68.1 kg

DRUGS (6)
  1. ASPIRIN [Concomitant]
     Indication: PRODUCT USED FOR UNKNOWN INDICATION
     Route: 048
  2. NIASPAN [Suspect]
     Indication: DYSLIPIDAEMIA
     Route: 048
     Dates: start: 20090101, end: 20100701
  3. NEUROPATH B [Concomitant]
     Indication: PRODUCT USED FOR UNKNOWN INDICATION
  4. NIASPAN [Suspect]
     Dates: start: 20100701
  5. BACLOFEN [Concomitant]
     Indication: FIBROMYALGIA
     Route: 048
  6. IBUPROFEN [Concomitant]
     Indication: PAIN

REACTIONS (4)
  - FLUSHING [None]
  - HYPOTHYROIDISM [None]
  - CARDIOLIPIN ANTIBODY [None]
  - PSORIATIC ARTHROPATHY [None]
